FAERS Safety Report 9218932 (Version 1)
Quarter: 2013Q2

REPORT INFORMATION
  Report Type: Spontaneous
  Country: US (occurrence: US)
  Receive Date: 20130409
  Receipt Date: 20130409
  Transmission Date: 20140414
  Serious: Yes (Death)
  Sender: FDA-Public Use
  Company Number: US-JNJFOC-20130402610

PATIENT
  Sex: 0

DRUGS (5)
  1. DOXORUBICIN [Suspect]
     Indication: HODGKIN^S DISEASE STAGE III
     Route: 042
  2. BLEOMYCIN [Suspect]
     Indication: HODGKIN^S DISEASE STAGE III
     Route: 065
  3. VINBLASTIN [Suspect]
     Indication: HODGKIN^S DISEASE STAGE III
     Route: 065
  4. DACARBAZINE [Suspect]
     Indication: HODGKIN^S DISEASE STAGE III
     Route: 065
  5. THERAPEUTIC RADIOPHARMACEUTICALS [Suspect]
     Indication: HODGKIN^S DISEASE STAGE III
     Dosage: 44 GRAY
     Route: 065

REACTIONS (2)
  - Acute myeloid leukaemia [Fatal]
  - Myelodysplastic syndrome [Fatal]
